FAERS Safety Report 4309448-7 (Version None)
Quarter: 2004Q1

REPORT INFORMATION
  Report Type: 
  Country: None (occurrence: None)
  Receive Date: 20040301
  Receipt Date: 20040217
  Transmission Date: 20041129
  Serious: Yes (Other)
  Sender: FDA-Public Use
  Company Number: B0324214A

PATIENT
  Age: 40 Year
  Sex: Female

DRUGS (2)
  1. NICODERM CQ [Suspect]
     Indication: EX-SMOKER
     Dosage: 14 MG, PER DAY, TRANSDERMAL
     Route: 062
     Dates: start: 20040116
  2. NICODERM CQ [Suspect]
     Indication: EX-SMOKER
     Dosage: 21 MG, PER DAY, TRANSDERMAL
     Route: 062
     Dates: start: 20031219, end: 20040116

REACTIONS (3)
  - PAIN OF SKIN [None]
  - PRURITUS GENERALISED [None]
  - RASH PUSTULAR [None]
